FAERS Safety Report 4430936-7 (Version None)
Quarter: 2004Q3

REPORT INFORMATION
  Report Type: 
  Country: None (occurrence: None)
  Receive Date: 20040823
  Receipt Date: 20040817
  Transmission Date: 20050211
  Serious: Yes (Life-Threatening, Hospitalization, Disabling, Other)
  Sender: FDA-Public Use
  Company Number: US-MERCK-0408USA01410

PATIENT
  Age: 41 Year
  Sex: Female
  Weight: 68 kg

DRUGS (7)
  1. TYLENOL W/ CODEINE NO. 3 [Concomitant]
     Indication: PAIN
     Route: 048
     Dates: start: 20040707, end: 20040720
  2. ZYRTEC [Concomitant]
     Indication: HYPERSENSITIVITY
     Route: 048
     Dates: start: 20040501
  3. DEPAKOTE [Concomitant]
     Indication: MENTAL DISORDER
     Route: 048
     Dates: start: 20040301
  4. NEXIUM [Concomitant]
     Indication: GASTROOESOPHAGEAL REFLUX DISEASE
     Route: 048
     Dates: start: 20010101
  5. SKELAXIN [Concomitant]
     Indication: PAIN
     Route: 048
     Dates: start: 20040707, end: 20040720
  6. VIOXX [Suspect]
     Indication: BACK PAIN
     Route: 048
     Dates: start: 20040707, end: 20040720
  7. EFFEXOR XR [Concomitant]
     Indication: MENTAL DISORDER
     Route: 048
     Dates: start: 20021108

REACTIONS (9)
  - BLOOD CREATININE ABNORMAL [None]
  - CHILLS [None]
  - CONSTIPATION [None]
  - FATIGUE [None]
  - NAUSEA [None]
  - PAIN [None]
  - PRURITUS [None]
  - PYREXIA [None]
  - VOMITING [None]
